FAERS Safety Report 26109430 (Version 1)
Quarter: 2025Q4

REPORT INFORMATION
  Report Type: Report from Study
  Country: US (occurrence: US)
  Receive Date: 20251201
  Receipt Date: 20251201
  Transmission Date: 20260118
  Serious: Yes (Other)
  Sender: MYLAN
  Company Number: US-MYLANLABS-2025M1100710

PATIENT
  Sex: Female

DRUGS (12)
  1. DILTIAZEM [Interacting]
     Active Substance: DILTIAZEM
     Indication: Product used for unknown indication
     Dosage: UNK
  2. DILTIAZEM [Interacting]
     Active Substance: DILTIAZEM
     Dosage: UNK
     Route: 065
  3. DILTIAZEM [Interacting]
     Active Substance: DILTIAZEM
     Dosage: UNK
     Route: 065
  4. DILTIAZEM [Interacting]
     Active Substance: DILTIAZEM
     Dosage: UNK
  5. JYNARQUE [Interacting]
     Active Substance: TOLVAPTAN
     Indication: Congenital cystic kidney disease
     Dosage: UNK
  6. JYNARQUE [Interacting]
     Active Substance: TOLVAPTAN
     Dosage: UNK
  7. JYNARQUE [Interacting]
     Active Substance: TOLVAPTAN
     Dosage: UNK
     Route: 065
  8. JYNARQUE [Interacting]
     Active Substance: TOLVAPTAN
     Dosage: UNK
     Route: 065
  9. JYNARQUE [Interacting]
     Active Substance: TOLVAPTAN
     Dosage: 15 MILLIGRAM, BID (TWICE A DAY)
     Dates: start: 20251024
  10. JYNARQUE [Interacting]
     Active Substance: TOLVAPTAN
     Dosage: 15 MILLIGRAM, BID (TWICE A DAY)
     Dates: start: 20251024
  11. JYNARQUE [Interacting]
     Active Substance: TOLVAPTAN
     Dosage: 15 MILLIGRAM, BID (TWICE A DAY)
     Route: 065
     Dates: start: 20251024
  12. JYNARQUE [Interacting]
     Active Substance: TOLVAPTAN
     Dosage: 15 MILLIGRAM, BID (TWICE A DAY)
     Route: 065
     Dates: start: 20251024

REACTIONS (2)
  - Spinal fracture [Not Recovered/Not Resolved]
  - Drug interaction [Unknown]

NARRATIVE: CASE EVENT DATE: 20250101
